FAERS Safety Report 4768783-9 (Version None)
Quarter: 2005Q3

REPORT INFORMATION
  Report Type: 
  Country: None (occurrence: None)
  Receive Date: 20050914
  Receipt Date: 20050907
  Transmission Date: 20060218
  Serious: Yes (Congenital Anomaly)
  Sender: FDA-Public Use
  Company Number: 200517875GDDC

PATIENT
  Age: 42 Year
  Sex: Female
  Weight: 69 kg

DRUGS (3)
  1. INSULIN GLARGINE [Suspect]
     Indication: DIABETES MELLITUS INSULIN-DEPENDENT
     Route: 058
     Dates: start: 20030601
  2. FOLIC ACID [Concomitant]
     Route: 048
  3. HUMALOG [Concomitant]
     Indication: DIABETES MELLITUS INSULIN-DEPENDENT
     Dosage: DOSE: VARIABLE; DOSE UNIT: UNITS
     Route: 058
     Dates: start: 20000901

REACTIONS (4)
  - ABORTION INDUCED [None]
  - DRUG EXPOSURE DURING PREGNANCY [None]
  - ENCEPHALOCELE [None]
  - HYDROCEPHALUS [None]
